FAERS Safety Report 6186372-9 (Version None)
Quarter: 2009Q2

REPORT INFORMATION
  Report Type: 
  Country: None (occurrence: None)
  Receive Date: 20090511
  Receipt Date: 20090505
  Transmission Date: 20091009
  Serious: Yes (Hospitalization)
  Sender: FDA-Public Use
  Company Number: US-JNJCH-2009008250

PATIENT
  Age: 69 Year
  Sex: Female
  Weight: 76.2 kg

DRUGS (1)
  1. ZYRTEC [Suspect]
     Indication: PRURITUS
     Route: 048
     Dates: start: 20090216, end: 20090216

REACTIONS (3)
  - BLOOD PRESSURE INCREASED [None]
  - HEART RATE INCREASED [None]
  - INSOMNIA [None]
